FAERS Safety Report 8518775-9 (Version None)
Quarter: 2012Q3

REPORT INFORMATION
  Report Type: 
  Country: None (occurrence: None)
  Receive Date: 20120718
  Receipt Date: 20120713
  Transmission Date: 20120928
  Serious: Yes (Hospitalization)
  Sender: FDA-Public Use
  Company Number: PHHY2012CA025111

PATIENT
  Sex: Female

DRUGS (1)
  1. SANDOSTATIN LAR [Suspect]
     Indication: PANCREATIC NEUROENDOCRINE TUMOUR
     Dosage: 30 MG, EVERY 4 WEEKS
     Route: 030
     Dates: start: 20110512

REACTIONS (8)
  - VOMITING [None]
  - SKIN DISCOLOURATION [None]
  - HYPOTENSION [None]
  - PAIN IN EXTREMITY [None]
  - PAIN [None]
  - CARDIAC ENZYMES INCREASED [None]
  - SEPSIS [None]
  - MYOCARDIAL INFARCTION [None]
